FAERS Safety Report 17399065 (Version 2)
Quarter: 2020Q1

REPORT INFORMATION
  Report Type: Spontaneous
  Country: US (occurrence: US)
  Receive Date: 20200210
  Receipt Date: 20200330
  Transmission Date: 20200409
  Serious: Yes (Hospitalization, Other)
  Sender: FDA-Public Use
  Company Number: US-BEH-2020112560

PATIENT
  Age: 79 Year
  Sex: Female

DRUGS (27)
  1. PRIVIGEN [Suspect]
     Active Substance: HUMAN IMMUNOGLOBULIN G
     Dosage: 15 GRAM, QMT
     Route: 042
     Dates: start: 201601
  2. AMLODIPINE [Concomitant]
     Active Substance: AMLODIPINE BESYLATE
  3. LISINOPRIL. [Concomitant]
     Active Substance: LISINOPRIL
  4. AMPHETAMINE [Concomitant]
     Active Substance: AMPHETAMINE
  5. BUPRENORPHINE. [Concomitant]
     Active Substance: BUPRENORPHINE
  6. ESOMEPRA [Concomitant]
     Active Substance: ESOMEPRAZOLE
  7. LEVOTHYROXIN [Concomitant]
     Active Substance: LEVOTHYROXINE
  8. PRIVIGEN [Suspect]
     Active Substance: HUMAN IMMUNOGLOBULIN G
     Dosage: UNK UNK, TOT
     Route: 042
     Dates: start: 20200302, end: 20200302
  9. PRIVIGEN [Suspect]
     Active Substance: HUMAN IMMUNOGLOBULIN G
     Dosage: UNK UNK, TOT
     Route: 042
     Dates: start: 20200120, end: 20200120
  10. PRIVIGEN [Suspect]
     Active Substance: HUMAN IMMUNOGLOBULIN G
     Dosage: UNK UNK, TOT
     Route: 042
     Dates: start: 20200302, end: 20200302
  11. CIPROFLOXACIN. [Concomitant]
     Active Substance: CIPROFLOXACIN
  12. GABAPENTIN. [Concomitant]
     Active Substance: GABAPENTIN
  13. ATIVAN [Concomitant]
     Active Substance: LORAZEPAM
     Indication: PREMEDICATION
     Dosage: 0.5 MILLIGRAM
     Route: 065
  14. PRIVIGEN [Suspect]
     Active Substance: HUMAN IMMUNOGLOBULIN G
     Indication: IMMUNODEFICIENCY COMMON VARIABLE
     Dosage: 15 GRAM, Q3MT
     Route: 042
     Dates: start: 20180212
  15. DIPHENOXYLATE/ATROPINE [Concomitant]
     Active Substance: ATROPINE\DIPHENOXYLATE
  16. MECLIZINE [Concomitant]
     Active Substance: MECLIZINE HYDROCHLORIDE
  17. SULFAMETHOXAZOL W/TRIMETOPRIM [Concomitant]
     Active Substance: SULFAMETHOXAZOLE\TRIMETHOPRIM
  18. DHEA [Concomitant]
     Active Substance: PRASTERONE
  19. ESCITALOPRAM [Concomitant]
     Active Substance: ESCITALOPRAM OXALATE
  20. URSODIOL. [Concomitant]
     Active Substance: URSODIOL
  21. PRIVIGEN [Suspect]
     Active Substance: HUMAN IMMUNOGLOBULIN G
     Dosage: UNK UNK, TOT
     Route: 042
     Dates: start: 20200120, end: 20200120
  22. DOXYCYCLINE. [Concomitant]
     Active Substance: DOXYCYCLINE
  23. TRAZODONE [Concomitant]
     Active Substance: TRAZODONE HYDROCHLORIDE
  24. BENADRYL [Concomitant]
     Active Substance: DIPHENHYDRAMINE HYDROCHLORIDE
     Indication: PREMEDICATION
     Dosage: 125 MILLIGRAM
     Route: 065
  25. DEXTROSE. [Concomitant]
     Active Substance: DEXTROSE
  26. COLESEVELAM [Concomitant]
     Active Substance: COLESEVELAM
  27. ONDANSETRON [Concomitant]
     Active Substance: ONDANSETRON

REACTIONS (8)
  - Swelling face [Recovered/Resolved]
  - Seizure [Recovered/Resolved]
  - Urosepsis [Recovered/Resolved]
  - Urinary tract infection [Recovered/Resolved]
  - Heart rate increased [Recovered/Resolved]
  - Dehydration [Recovered/Resolved]
  - Blood pressure increased [Recovered/Resolved]
  - Peripheral swelling [Recovered/Resolved]

NARRATIVE: CASE EVENT DATE: 201912
